FAERS Safety Report 4298279-2 (Version None)
Quarter: 2004Q1

REPORT INFORMATION
  Report Type: 
  Country: None (occurrence: None)
  Receive Date: 20040126
  Receipt Date: 20031023
  Transmission Date: 20041129
  Serious: No
  Sender: FDA-Public Use
  Company Number: USA031050692

PATIENT
  Age: 7 Year
  Sex: Female
  Weight: 36 kg

DRUGS (2)
  1. STRATTERA [Suspect]
     Dosage: 40 MG/DAY
     Dates: start: 20030901
  2. RISPERDAL [Concomitant]

REACTIONS (6)
  - ABDOMINAL PAIN [None]
  - CONSTIPATION [None]
  - DRUG INEFFECTIVE [None]
  - EYE IRRITATION [None]
  - MIDDLE INSOMNIA [None]
  - MYDRIASIS [None]
